FAERS Safety Report 24026209 (Version 2)
Quarter: 2024Q3

REPORT INFORMATION
  Report Type: Report from Study
  Country: CN (occurrence: CN)
  Receive Date: 20240628
  Receipt Date: 20240710
  Transmission Date: 20241017
  Serious: No
  Sender: ROCHE
  Company Number: CN-ROCHE-3285757

PATIENT
  Age: 30 Year
  Sex: Female
  Weight: 65.0 kg

DRUGS (7)
  1. ALECTINIB [Suspect]
     Active Substance: ALECTINIB
     Indication: Non-small cell lung cancer metastatic
     Route: 048
     Dates: start: 20211202
  2. EBASTINE [Concomitant]
     Active Substance: EBASTINE
     Indication: Drug eruption
     Route: 048
     Dates: start: 20220525, end: 20221214
  3. HALOMETASONE;TRICLOSAN [Concomitant]
     Indication: Drug eruption
     Route: 062
     Dates: start: 20220723, end: 20230315
  4. RUPATADINE FUMARATE [Concomitant]
     Active Substance: RUPATADINE FUMARATE
     Indication: Drug eruption
     Route: 048
     Dates: start: 20221215, end: 20230301
  5. JIXUEGAN SHUANG RUANGAO [Concomitant]
     Indication: Drug eruption
     Route: 062
     Dates: start: 20221215, end: 20230115
  6. GLYCYRRHIZIN [Concomitant]
     Active Substance: GLYCYRRHIZIN
     Indication: Drug eruption
     Route: 048
     Dates: start: 20230215, end: 20230303
  7. DEXAMETHASONE ACETATE [Concomitant]
     Active Substance: DEXAMETHASONE ACETATE
     Indication: Drug eruption
     Route: 048
     Dates: start: 20230215, end: 20230305

REACTIONS (2)
  - COVID-19 [Recovered/Resolved]
  - Folliculitis [Recovered/Resolved]

NARRATIVE: CASE EVENT DATE: 20221212
